FAERS Safety Report 8479184-4 (Version None)
Quarter: 2012Q2

REPORT INFORMATION
  Report Type: 
  Country: None (occurrence: None)
  Receive Date: 20120629
  Receipt Date: 20120621
  Transmission Date: 20120825
  Serious: Yes (Hospitalization, Other)
  Sender: FDA-Public Use
  Company Number: CA-JNJFOC-20120408430

PATIENT
  Sex: Male

DRUGS (6)
  1. VALPROATE SODIUM [Concomitant]
     Route: 065
  2. INDAPAMIDE [Concomitant]
     Route: 065
  3. INVEGA SUSTENNA [Suspect]
     Indication: SCHIZOAFFECTIVE DISORDER
     Route: 030
     Dates: start: 20120323
  4. INVEGA SUSTENNA [Suspect]
     Route: 030
     Dates: start: 20120330
  5. LITHIUM CARBONATE [Concomitant]
     Route: 065
  6. INVEGA SUSTENNA [Suspect]
     Route: 030
     Dates: start: 20120427

REACTIONS (1)
  - SCHIZOAFFECTIVE DISORDER [None]
